FAERS Safety Report 6524266-7 (Version None)
Quarter: 2009Q4

REPORT INFORMATION
  Report Type: 
  Country: None (occurrence: None)
  Receive Date: 20091231
  Receipt Date: 20091222
  Transmission Date: 20100525
  Serious: Yes (Hospitalization)
  Sender: FDA-Public Use
  Company Number: US-GENENTECH-296276

PATIENT
  Sex: Male

DRUGS (2)
  1. RITUXAN [Suspect]
     Indication: B-CELL LYMPHOMA
     Route: 042
  2. TREANDA [Suspect]
     Indication: B-CELL LYMPHOMA

REACTIONS (2)
  - ERYTHEMA [None]
  - SKIN EXFOLIATION [None]
